FAERS Safety Report 14849374 (Version 5)
Quarter: 2018Q3

REPORT INFORMATION
  Report Type: Report from Study
  Country: RU (occurrence: RU)
  Receive Date: 20180504
  Receipt Date: 20180716
  Transmission Date: 20181010
  Serious: Yes (Death, Other)
  Sender: FDA-Public Use
  Company Number: PHHY2018RU076256

PATIENT
  Age: 51 Year
  Sex: Female

DRUGS (2)
  1. TRAMETINIB [Suspect]
     Active Substance: TRAMETINIB
     Indication: METASTASES TO LYMPH NODES
     Dosage: 2 MG, UNK
     Route: 048
     Dates: end: 20180423
  2. DABRAFENIB [Suspect]
     Active Substance: DABRAFENIB
     Indication: METASTASES TO LYMPH NODES
     Dosage: 150 MG AT MORNING 75 MG AT EVENING
     Route: 048
     Dates: end: 20180423

REACTIONS (9)
  - Tumour necrosis [Fatal]
  - Vision blurred [Unknown]
  - Tumour haemorrhage [Fatal]
  - Iridocyclitis [Recovered/Resolved]
  - Malignant neoplasm progression [Fatal]
  - Metastases to lymph nodes [Fatal]
  - Malignant melanoma [Fatal]
  - Product use in unapproved indication [Unknown]
  - Eye pain [Unknown]

NARRATIVE: CASE EVENT DATE: 20180416
